FAERS Safety Report 19934305 (Version 1)
Quarter: 2021Q4

REPORT INFORMATION
  Report Type: Spontaneous
  Country: KR (occurrence: KR)
  Receive Date: 20211008
  Receipt Date: 20211008
  Transmission Date: 20220303
  Serious: Yes (Other)
  Sender: FDA-Public Use
  Company Number: KR-NOVARTISPH-NVSC2021KR230125

PATIENT
  Sex: Male

DRUGS (1)
  1. BEOVU [Suspect]
     Active Substance: BROLUCIZUMAB-DBLL
     Indication: Product used for unknown indication
     Dosage: UNK UNK, Q3MO
     Route: 065

REACTIONS (3)
  - Retinal vasculitis [Recovering/Resolving]
  - Retinal vascular occlusion [Recovering/Resolving]
  - Visual impairment [Not Recovered/Not Resolved]
